FAERS Safety Report 9993438 (Version 2)
Quarter: 2014Q1

REPORT INFORMATION
  Report Type: Spontaneous
  Country: US (occurrence: US)
  Receive Date: 20140310
  Receipt Date: 20140310
  Transmission Date: 20141002
  Serious: Yes (Other)
  Sender: FDA-Public Use
  Company Number: US-ACORDA-ACO_39008_2013

PATIENT
  Sex: Female

DRUGS (1)
  1. AMPYRA [Suspect]
     Indication: GAIT DISTURBANCE
     Dosage: UNK,UNK
     Route: 065
     Dates: start: 20130717, end: 2013

REACTIONS (2)
  - Myelitis transverse [Not Recovered/Not Resolved]
  - Disease progression [Unknown]
